FAERS Safety Report 5296562-5 (Version None)
Quarter: 2007Q2

REPORT INFORMATION
  Report Type: 
  Country: None (occurrence: None)
  Receive Date: 20070413
  Receipt Date: 20061002
  Transmission Date: 20071010
  Serious: Yes (Hospitalization)
  Sender: FDA-Public Use
  Company Number: US-ALLERGAN-0605660US

PATIENT
  Sex: Female

DRUGS (6)
  1. LUMIGAN [Suspect]
     Indication: GLAUCOMA
     Route: 047
     Dates: start: 20060301
  2. ALPHAGAN P [Suspect]
     Indication: GLAUCOMA
     Dates: start: 20060425
  3. COSOPT [Suspect]
     Indication: GLAUCOMA
     Dosage: UNK, BID
     Route: 047
     Dates: start: 20050401
  4. LIPITOR [Concomitant]
     Indication: BLOOD CHOLESTEROL INCREASED
  5. DIOVAN [Concomitant]
     Indication: BLOOD PRESSURE INCREASED
  6. ZOLOFT [Concomitant]
     Indication: DRUG USE FOR UNKNOWN INDICATION

REACTIONS (8)
  - BLEPHAROPACHYNSIS [None]
  - BLOOD POTASSIUM DECREASED [None]
  - DEPRESSION [None]
  - ERYTHEMA OF EYELID [None]
  - HYPONATRAEMIA [None]
  - MYOPIA [None]
  - SCOTOMA [None]
  - VISUAL FIELD DEFECT [None]
